FAERS Safety Report 7323542-8 (Version None)
Quarter: 2011Q1

REPORT INFORMATION
  Report Type: 
  Country: None (occurrence: None)
  Receive Date: 20110301
  Receipt Date: 20110223
  Transmission Date: 20110831
  Serious: Yes (Other)
  Sender: FDA-Public Use
  Company Number: FR-ROCHE-758008

PATIENT
  Sex: Male
  Weight: 92 kg

DRUGS (4)
  1. IBUPROFEN [Concomitant]
  2. TAMIFLU [Suspect]
     Route: 048
     Dates: start: 20110119, end: 20110121
  3. EFFERALGAN [Concomitant]
     Dosage: FREQUENCY: IF NEEDED.
  4. TAMIFLU [Suspect]
     Indication: INFLUENZA
     Route: 048
     Dates: start: 20110117

REACTIONS (1)
  - SUICIDAL IDEATION [None]
